FAERS Safety Report 5727455-4 (Version None)
Quarter: 2008Q2

REPORT INFORMATION
  Report Type: 
  Country: None (occurrence: None)
  Receive Date: 20080505
  Receipt Date: 20080423
  Transmission Date: 20081010
  Serious: Yes (Hospitalization, Other)
  Sender: FDA-Public Use
  Company Number: DE-PURDUE-DEU_2008_0004222

PATIENT
  Age: 62 Year
  Sex: Female
  Weight: 40 kg

DRUGS (10)
  1. OXY/NALOXONE VS OXYCODONE [Suspect]
     Indication: CANCER PAIN
     Dosage: 60 MG, DAILY
     Route: 048
     Dates: start: 20080415, end: 20080417
  2. OXYCODONE HCL IR CAPSULES 5 MG [Suspect]
     Indication: CANCER PAIN
     Route: 048
  3. BISACODYL [Suspect]
     Indication: CONSTIPATION
     Dosage: 5 MG, PRN
  4. L-THYROXIN [Concomitant]
  5. PALLADON HARTKAPSELN [Concomitant]
     Indication: PAIN
     Dosage: 2.6 MG, DAILY
     Route: 048
  6. JURNISTA [Concomitant]
  7. ZOPICLONE [Concomitant]
  8. NULYTELY [Concomitant]
  9. SEVREDOL 10 MG [Concomitant]
     Indication: PAIN
     Route: 048
  10. CLINDAMYCIN [Concomitant]

REACTIONS (1)
  - CATHETER SITE INFECTION [None]
